FAERS Safety Report 4495226-5 (Version None)
Quarter: 2004Q4

REPORT INFORMATION
  Report Type: 
  Country: None (occurrence: None)
  Receive Date: 20041108
  Receipt Date: 20040714
  Transmission Date: 20050328
  Serious: No
  Sender: FDA-Public Use
  Company Number: US-GLAXOSMITHKLINE-A0518253A

PATIENT
  Sex: Female

DRUGS (5)
  1. AVANDAMET [Suspect]
     Route: 048
  2. TOPROL-XL [Concomitant]
  3. LOVASTATIN [Concomitant]
  4. VERAPAMIL [Concomitant]
  5. LOTENSIN [Concomitant]

REACTIONS (1)
  - WEIGHT INCREASED [None]
